FAERS Safety Report 6623111-9 (Version None)
Quarter: 2010Q1

REPORT INFORMATION
  Report Type: 
  Country: None (occurrence: None)
  Receive Date: 20100310
  Receipt Date: 20091211
  Transmission Date: 20100710
  Serious: No
  Sender: FDA-Public Use
  Company Number: US-BIOGENIDEC-2009BI040810

PATIENT
  Age: 73 Year
  Sex: Male

DRUGS (2)
  1. AVONEX [Suspect]
     Indication: MULTIPLE SCLEROSIS
     Route: 030
     Dates: start: 20040323, end: 20040630
  2. AVONEX [Suspect]
     Route: 030
     Dates: start: 20091022

REACTIONS (1)
  - SPEECH DISORDER [None]
